FAERS Safety Report 7414756-7 (Version None)
Quarter: 2011Q2

REPORT INFORMATION
  Report Type: 
  Country: None (occurrence: None)
  Receive Date: 20110406
  Receipt Date: 20110331
  Transmission Date: 20111010
  Serious: Yes (Hospitalization)
  Sender: FDA-Public Use
  Company Number: B0710191A

PATIENT
  Age: 3 Day
  Sex: Male

DRUGS (2)
  1. ZIDOVUDINE [Suspect]
     Dosage: TRANSPLACENTARY
     Route: 064
  2. ZIDOVUDINE [Suspect]
     Dosage: 2 MG/KG/ TWICE PER DAY / ORAL
     Route: 048

REACTIONS (5)
  - BLOOD LACTIC ACID INCREASED [None]
  - MATERNAL DRUGS AFFECTING FOETUS [None]
  - INCORRECT DOSE ADMINISTERED [None]
  - ANION GAP INCREASED [None]
  - BRADYCARDIA NEONATAL [None]
